FAERS Safety Report 9314875 (Version 1)
Quarter: 2013Q2

REPORT INFORMATION
  Report Type: Spontaneous
  Country: GB (occurrence: GB)
  Receive Date: 20130529
  Receipt Date: 20130529
  Transmission Date: 20140414
  Serious: Yes (Life-Threatening, Hospitalization)
  Sender: FDA-Public Use
  Company Number: PHHY2013GB053395

PATIENT
  Age: 77 Year
  Sex: Male
  Weight: 110 kg

DRUGS (10)
  1. SIMVASTATIN [Suspect]
     Indication: BLOOD CHOLESTEROL INCREASED
     Dosage: 40 MG, QD (AT NIGHT)
     Route: 048
  2. OLANZAPINE [Concomitant]
  3. ISOSORBIDE [Concomitant]
  4. AMLODIPINE [Concomitant]
  5. ASPIRIN [Concomitant]
  6. TAMSULOSIN [Concomitant]
  7. ATENOLOL [Concomitant]
  8. SOLIFENACIN [Concomitant]
  9. CITALOPRAM [Concomitant]
  10. BICALUTAMIDE [Concomitant]

REACTIONS (3)
  - Urosepsis [Unknown]
  - Rhabdomyolysis [Recovering/Resolving]
  - Renal failure acute [Unknown]
